FAERS Safety Report 6249015-1 (Version None)
Quarter: 2009Q2

REPORT INFORMATION
  Report Type: 
  Country: None (occurrence: None)
  Receive Date: 20090624
  Receipt Date: 20090624
  Transmission Date: 20091009
  Serious: No
  Sender: FDA-Public Use
  Company Number: None

PATIENT
  Sex: Female
  Weight: 77.4 kg

DRUGS (2)
  1. GABAPENTIN [Suspect]
     Indication: CERVICAL SPINAL STENOSIS
     Dosage: 800 MG TID OPTHALMIC FEW DAYS
     Route: 047
     Dates: start: 20080508, end: 20080509
  2. GABAPENTIN [Suspect]
     Indication: NEURALGIA
     Dosage: 800 MG TID OPTHALMIC FEW DAYS
     Route: 047
     Dates: start: 20080508, end: 20080509

REACTIONS (3)
  - HEAD DISCOMFORT [None]
  - HEADACHE [None]
  - NO THERAPEUTIC RESPONSE [None]
